FAERS Safety Report 20455415 (Version 2)
Quarter: 2022Q1

REPORT INFORMATION
  Report Type: Spontaneous
  Country: US (occurrence: US)
  Receive Date: 20220210
  Receipt Date: 20220325
  Transmission Date: 20220424
  Serious: Yes (Life-Threatening, Hospitalization, Other)
  Sender: FDA-Public Use
  Company Number: US-GLAXOSMITHKLINE-US2022AMR023288

PATIENT
  Age: 66 Year
  Sex: Female
  Weight: 98 kg

DRUGS (1)
  1. SOTROVIMAB [Suspect]
     Active Substance: SOTROVIMAB
     Indication: COVID-19
     Dosage: 500 MG, ONCE
     Route: 042
     Dates: start: 20220204, end: 20220204

REACTIONS (10)
  - Malaise [Recovered/Resolved with Sequelae]
  - Condition aggravated [Recovered/Resolved with Sequelae]
  - Lung infiltration [Recovered/Resolved]
  - Acute respiratory failure [Unknown]
  - Atelectasis [Recovered/Resolved]
  - Hypertension [Unknown]
  - Anaphylactic shock [Unknown]
  - COVID-19 [Unknown]
  - Adverse drug reaction [Unknown]
  - Blood glucose increased [Unknown]

NARRATIVE: CASE EVENT DATE: 20220201
